FAERS Safety Report 14126822 (Version 3)
Quarter: 2018Q1

REPORT INFORMATION
  Report Type: Spontaneous
  Country: RO (occurrence: RO)
  Receive Date: 20171025
  Receipt Date: 20180109
  Transmission Date: 20180508
  Serious: Yes (Death, Hospitalization, Other)
  Sender: FDA-Public Use
  Company Number: RO-ASTRAZENECA-2017SF08314

PATIENT
  Age: 53 Year
  Sex: Male

DRUGS (15)
  1. DIGOXIN. [Concomitant]
     Active Substance: DIGOXIN
     Dosage: HALF, DAILY
  2. ACENOCOUMAROL [Concomitant]
     Active Substance: ACENOCOUMAROL
  3. SORTIS [Concomitant]
     Active Substance: ATORVASTATIN
  4. PLAVIX [Concomitant]
     Active Substance: CLOPIDOGREL BISULFATE
  5. RAMIPRIL. [Concomitant]
     Active Substance: RAMIPRIL
  6. BRILIQUE [Suspect]
     Active Substance: TICAGRELOR
     Route: 048
     Dates: end: 20160530
  7. CARVEDILOL. [Concomitant]
     Active Substance: CARVEDILOL
  8. DIUREX [Concomitant]
     Active Substance: AMILORIDE HYDROCHLORIDE\HYDROCHLOROTHIAZIDE
  9. CARVEDILOL. [Concomitant]
     Active Substance: CARVEDILOL
  10. CARVEDILOL. [Concomitant]
     Active Substance: CARVEDILOL
  11. LANTUS [Concomitant]
     Active Substance: INSULIN GLARGINE
     Dosage: 0,0,18
  12. RAMIPRIL. [Concomitant]
     Active Substance: RAMIPRIL
  13. RAMIPRIL. [Concomitant]
     Active Substance: RAMIPRIL
  14. HUMULIN R [Concomitant]
     Active Substance: INSULIN HUMAN
     Dosage: 8,8,0
  15. CORLENTOR [Concomitant]
     Active Substance: IVABRADINE HYDROCHLORIDE

REACTIONS (18)
  - Acute myocardial infarction [Unknown]
  - Hyperglycaemia [Unknown]
  - Gangrene [Unknown]
  - Hypotension [Unknown]
  - Mitral valve incompetence [Unknown]
  - Myocardial infarction [Fatal]
  - Left ventricular failure [Unknown]
  - Diabetes mellitus inadequate control [Unknown]
  - Syncope [Unknown]
  - Ischaemic cardiomyopathy [Unknown]
  - Cardiac aneurysm [Unknown]
  - Intracardiac thrombus [Unknown]
  - Peripheral arterial occlusive disease [Unknown]
  - Orthopnoea [Unknown]
  - Cardiac failure [Fatal]
  - Infected skin ulcer [Unknown]
  - Dyspnoea paroxysmal nocturnal [Unknown]
  - Tricuspid valve incompetence [Unknown]

NARRATIVE: CASE EVENT DATE: 20160110
